FAERS Safety Report 24195249 (Version 1)
Quarter: 2024Q3

REPORT INFORMATION
  Report Type: Spontaneous
  Country: US (occurrence: US)
  Receive Date: 20240809
  Receipt Date: 20240809
  Transmission Date: 20241017
  Serious: No
  Sender: PHARMACEUTICAL ASSOC
  Company Number: US-PAIPHARMA-2023-US-044596

PATIENT
  Age: 77 Year
  Sex: Male
  Weight: 81.65 kg

DRUGS (18)
  1. LACTULOSE [Suspect]
     Active Substance: LACTULOSE
     Indication: Constipation
     Dosage: 1-3 TIMES DAILY
     Route: 048
     Dates: start: 20220220
  2. RAMIPRIL [Concomitant]
     Active Substance: RAMIPRIL
  3. ROSUVASTATIN [Concomitant]
     Active Substance: ROSUVASTATIN\ROSUVASTATIN CALCIUM
  4. TAMSULOSIN [Concomitant]
     Active Substance: TAMSULOSIN
  5. TESTOSTERONE [Concomitant]
     Active Substance: TESTOSTERONE
  6. METOPROLOL [Concomitant]
     Active Substance: METOPROLOL
  7. TRAZODONE [Concomitant]
     Active Substance: TRAZODONE HYDROCHLORIDE
  8. VITAMINS [Concomitant]
     Active Substance: VITAMINS
  9. VITAMIN B12 [Concomitant]
     Active Substance: CYANOCOBALAMIN
  10. VITAMIN D3 [Concomitant]
     Active Substance: CHOLECALCIFEROL
  11. AMLODIPINE [Concomitant]
     Active Substance: AMLODIPINE BESYLATE
  12. CLONAZEPAM [Concomitant]
     Active Substance: CLONAZEPAM
  13. PLAVIX [Concomitant]
     Active Substance: CLOPIDOGREL BISULFATE
  14. ELIQUIS [Concomitant]
     Active Substance: APIXABAN
  15. METHYLPHENIDATE [Concomitant]
     Active Substance: METHYLPHENIDATE
  16. NARCAN [Concomitant]
     Active Substance: NALOXONE HYDROCHLORIDE
  17. ONDANSETRON [Concomitant]
     Active Substance: ONDANSETRON
  18. OXYCODONE [Concomitant]
     Active Substance: OXYCODONE

REACTIONS (3)
  - Constipation [Not Recovered/Not Resolved]
  - Bowel movement irregularity [Not Recovered/Not Resolved]
  - Drug ineffective [Not Recovered/Not Resolved]

NARRATIVE: CASE EVENT DATE: 20231101
